FAERS Safety Report 9299329 (Version 2)
Quarter: 2015Q1

REPORT INFORMATION
  Report Type: Spontaneous
  Country: IT (occurrence: IT)
  Receive Date: 20130520
  Receipt Date: 20150315
  Transmission Date: 20150721
  Serious: Yes (Other)
  Sender: FDA-Public Use
  Company Number: IT-009507513-1305ITA005392

PATIENT
  Age: 45 Year
  Sex: Female

DRUGS (5)
  1. CARBAMAZEPINE. [Concomitant]
     Active Substance: CARBAMAZEPINE
     Indication: TEMPORAL LOBE EPILEPSY
     Dosage: DECREASED TO 600 MG, QD
  2. PROSCAR [Suspect]
     Active Substance: FINASTERIDE
     Indication: HIRSUTISM
     Dosage: 5 MG, QD
     Route: 048
  3. LAMOTRIGINE. [Concomitant]
     Active Substance: LAMOTRIGINE
     Indication: TEMPORAL LOBE EPILEPSY
     Dosage: 300 MG, QD
  4. CARBAMAZEPINE. [Concomitant]
     Active Substance: CARBAMAZEPINE
     Indication: PARTIAL SEIZURES
     Dosage: INITIALLY 800 MG/PER DAY
     Route: 048
  5. LAMOTRIGINE. [Concomitant]
     Active Substance: LAMOTRIGINE
     Indication: PARTIAL SEIZURES

REACTIONS (4)
  - Drug administration error [Unknown]
  - Temporal lobe epilepsy [Recovered/Resolved]
  - Partial seizures [Recovered/Resolved]
  - Seizure [Recovered/Resolved]
